FAERS Safety Report 15593167 (Version 1)
Quarter: 2018Q4

REPORT INFORMATION
  Report Type: Spontaneous
  Country: US (occurrence: US)
  Receive Date: 20181107
  Receipt Date: 20181107
  Transmission Date: 20190205
  Serious: No
  Sender: FDA-Public Use
  Company Number: US-PFIZER INC-2018444361

PATIENT
  Age: 73 Year
  Sex: Male
  Weight: 83.91 kg

DRUGS (2)
  1. SYNTHROID [Concomitant]
     Active Substance: LEVOTHYROXINE SODIUM
     Indication: HYPOTHYROIDISM
     Dosage: 50 UG, 1X/DAY
     Route: 048
     Dates: start: 200005
  2. SILDENAFIL CITRATE. [Suspect]
     Active Substance: SILDENAFIL CITRATE
     Indication: ERECTILE DYSFUNCTION
     Dosage: 20 MG, UNK (ON AVERAGE ONCE EVERY 10 DAYS)
     Route: 048
     Dates: start: 20180530, end: 20181020

REACTIONS (2)
  - Tinnitus [Recovering/Resolving]
  - Auditory disorder [Recovering/Resolving]

NARRATIVE: CASE EVENT DATE: 20181022
